FAERS Safety Report 7404893 (Version 2)
Quarter: 2013Q1

REPORT INFORMATION
  Report Type: Spontaneous
  Country: US (occurrence: US)
  Receive Date: 20100601
  Receipt Date: 20130304
  Transmission Date: 20140127
  Serious: No
  Sender: FDA-Public Use
  Company Number: US-BIOGENIDEC-2010BI017248

PATIENT
  Sex: Female

DRUGS (2)
  1. TYSABRI [Suspect]
     Indication: MULTIPLE SCLEROSIS
     Route: 042
     Dates: start: 20070920, end: 20080221
  2. TYSABRI [Suspect]
     Indication: MULTIPLE SCLEROSIS
     Route: 042
     Dates: start: 20090619

REACTIONS (4)
  - Somnolence [Recovered/Resolved]
  - Stress [Recovered/Resolved]
  - Multiple sclerosis relapse [Recovered/Resolved]
  - Asthenia [Recovered/Resolved]
